FAERS Safety Report 13818992 (Version 1)
Quarter: 2017Q3

REPORT INFORMATION
  Report Type: Report from Study
  Country: US (occurrence: US)
  Receive Date: 20170731
  Receipt Date: 20170731
  Transmission Date: 20171127
  Serious: No
  Sender: FDA-Public Use
  Company Number: US-EXELIXIS-CABO-17009013

PATIENT
  Age: 40 Year
  Sex: Male
  Weight: 104.76 kg

DRUGS (12)
  1. MORPHINE SULFATE. [Concomitant]
     Active Substance: MORPHINE SULFATE
  2. ROSUVASTATIN CALCIUM. [Concomitant]
     Active Substance: ROSUVASTATIN CALCIUM
  3. CABOMETYX [Suspect]
     Active Substance: CABOZANTINIB S-MALATE
     Indication: RENAL CANCER
     Dosage: 60 MG, QD
     Route: 048
     Dates: start: 20170408, end: 201705
  4. FENOFIBRATE. [Concomitant]
     Active Substance: FENOFIBRATE
  5. OMEPRAZOLE. [Concomitant]
     Active Substance: OMEPRAZOLE
  6. FLAXSEED [Concomitant]
     Active Substance: FLAX SEED
  7. PREDNISONE. [Concomitant]
     Active Substance: PREDNISONE
  8. DOCUSATE SODIUM. [Concomitant]
     Active Substance: DOCUSATE SODIUM
  9. NICOTINE STEP 2 [Concomitant]
  10. CLINDAMYCIN. [Concomitant]
     Active Substance: CLINDAMYCIN
  11. RED YEAST RICE WITH PLANT STEROLS [Concomitant]
  12. NOVOLOG [Concomitant]
     Active Substance: INSULIN ASPART

REACTIONS (2)
  - Adverse drug reaction [Unknown]
  - Wound [Unknown]

NARRATIVE: CASE EVENT DATE: 201705
